FAERS Safety Report 21371230 (Version 1)
Quarter: 2022Q3

REPORT INFORMATION
  Report Type: Spontaneous
  Country: AU (occurrence: None)
  Receive Date: 20220923
  Receipt Date: 20220923
  Transmission Date: 20221027
  Serious: Yes (Disabling, Other)
  Sender: FDA-Public Use
  Company Number: 2022A315038

PATIENT
  Sex: Female

DRUGS (2)
  1. SYMBICORT [Suspect]
     Active Substance: BUDESONIDE\FORMOTEROL FUMARATE DIHYDRATE
     Indication: Asthma
     Dosage: 200/6 UNKNOWN
     Route: 055
     Dates: start: 202206, end: 202209
  2. OLMESARTEN [Concomitant]

REACTIONS (5)
  - Asthma [Unknown]
  - Drug ineffective [Unknown]
  - Device difficult to use [Unknown]
  - Device use issue [Unknown]
  - Device malfunction [Unknown]
